FAERS Safety Report 13197379 (Version 2)
Quarter: 2017Q1

REPORT INFORMATION
  Report Type: Spontaneous
  Country: DE (occurrence: DE)
  Receive Date: 20170208
  Receipt Date: 20170306
  Transmission Date: 20170428
  Serious: Yes (Life-Threatening, Hospitalization)
  Sender: FDA-Public Use
  Company Number: DE-TAKEDA-2017TUS002992

PATIENT
  Age: 76 Year
  Sex: Male
  Weight: 111 kg

DRUGS (9)
  1. LERCANIDIPINE [Concomitant]
     Active Substance: LERCANIDIPINE
     Dosage: 20 MG, QD
  2. ADENURIC [Suspect]
     Active Substance: FEBUXOSTAT
     Indication: HYPERURICAEMIA
     Dosage: 80 MG, UNK
     Route: 048
     Dates: start: 20170118, end: 20170206
  3. VALSARTAN. [Concomitant]
     Active Substance: VALSARTAN
     Dosage: 160/25, BID
  4. BELOC-ZOK COMP [Concomitant]
     Active Substance: HYDROCHLOROTHIAZIDE\METOPROLOL SUCCINATE
     Dosage: UNK, BID
  5. TOREM                              /01036501/ [Concomitant]
     Active Substance: TORSEMIDE
     Dosage: UNK, QD
  6. INSPRA [Concomitant]
     Active Substance: EPLERENONE
     Dosage: UNK, QD
  7. DOXAZOSIN [Concomitant]
     Active Substance: DOXAZOSIN\DOXAZOSIN MESYLATE
     Dosage: UNK, QD
  8. CORDAREX [Concomitant]
     Active Substance: AMIODARONE
     Dosage: UNK, QD
  9. FALITHROM [Concomitant]
     Active Substance: PHENPROCOUMON
     Dosage: UNK

REACTIONS (1)
  - Pneumonia chlamydial [Recovered/Resolved]

NARRATIVE: CASE EVENT DATE: 20170124
